FAERS Safety Report 8986322 (Version 2)
Quarter: 2013Q1

REPORT INFORMATION
  Report Type: Report from Study
  Country: DE (occurrence: DE)
  Receive Date: 20121227
  Receipt Date: 20130120
  Transmission Date: 20140127
  Serious: Yes (Hospitalization)
  Sender: FDA-Public Use
  Company Number: DE-BRISTOL-MYERS SQUIBB COMPANY-17239369

PATIENT
  Age: 79 Year
  Sex: Male
  Weight: 90 kg

DRUGS (5)
  1. ERBITUX SOLN FOR INF [Suspect]
     Indication: COLORECTAL CANCER METASTATIC
     Dosage: 20NOV12-20NOV12
     Route: 042
     Dates: start: 20121120, end: 20121121
  2. CAPECITABINE [Concomitant]
     Indication: COLORECTAL CANCER METASTATIC
  3. AMLODIPINE [Concomitant]
     Indication: HYPERTENSION
  4. BELOC-ZOK [Concomitant]
     Indication: HYPERTENSION
  5. CLEXANE [Concomitant]
     Indication: THROMBOSIS
     Route: 058

REACTIONS (1)
  - Syncope [Not Recovered/Not Resolved]
